FAERS Safety Report 6410719-9 (Version None)
Quarter: 2009Q4

REPORT INFORMATION
  Report Type: 
  Country: None (occurrence: None)
  Receive Date: 20091020
  Receipt Date: 20091020
  Transmission Date: 20100525
  Serious: No
  Sender: FDA-Public Use
  Company Number: None

PATIENT
  Age: 60 Year
  Sex: Female

DRUGS (2)
  1. LYRICA [Suspect]
     Dosage: 75 MG TID
     Dates: start: 20080827, end: 20081021
  2. LIMBREL (FLAVOCOXID) [Suspect]
     Dosage: 500 MG BID
     Dates: start: 20080703, end: 20081023

REACTIONS (3)
  - CHOLESTATIC LIVER INJURY [None]
  - HEPATIC NECROSIS [None]
  - HEPATITIS [None]
